FAERS Safety Report 9752384 (Version 1)
Quarter: 2013Q4

REPORT INFORMATION
  Report Type: Spontaneous
  Country: US (occurrence: US)
  Receive Date: 20131213
  Receipt Date: 20131213
  Transmission Date: 20140711
  Serious: Yes (Other)
  Sender: FDA-Public Use
  Company Number: US-PFIZER INC-2013357195

PATIENT
  Sex: Female

DRUGS (1)
  1. LYRICA [Suspect]
     Dosage: 50 MG, DAILY
     Dates: start: 2013, end: 2013

REACTIONS (2)
  - Swelling [Recovered/Resolved]
  - Swelling face [Not Recovered/Not Resolved]
